FAERS Safety Report 7382525-2 (Version None)
Quarter: 2011Q1

REPORT INFORMATION
  Report Type: 
  Country: None (occurrence: None)
  Receive Date: 20110329
  Receipt Date: 20110323
  Transmission Date: 20110831
  Serious: Yes (Death, Life-Threatening)
  Sender: FDA-Public Use
  Company Number: JP-BAYER-200914339BYL

PATIENT
  Sex: Male

DRUGS (1)
  1. NEXAVAR [Suspect]
     Indication: HEPATIC NEOPLASM MALIGNANT
     Dosage: 400 MG, BID
     Route: 048
     Dates: start: 20090819, end: 20090902

REACTIONS (3)
  - HEPATIC NEOPLASM MALIGNANT [None]
  - OESOPHAGEAL VARICES HAEMORRHAGE [None]
  - HEPATIC FUNCTION ABNORMAL [None]
